FAERS Safety Report 10608272 (Version 3)
Quarter: 2015Q1

REPORT INFORMATION
  Report Type: Spontaneous
  Country: FI (occurrence: FI)
  Receive Date: 20141125
  Receipt Date: 20150210
  Transmission Date: 20150720
  Serious: Yes (Hospitalization)
  Sender: FDA-Public Use
  Company Number: FI-NAPPMUNDI-GBR-2014-0022831

PATIENT
  Age: 86 Year
  Sex: Female

DRUGS (16)
  1. NORSPAN [Suspect]
     Active Substance: BUPRENORPHINE
     Indication: SPINAL PAIN
     Dosage: 20 MCG, Q1H
     Route: 062
     Dates: start: 201410
  2. NORSPAN [Suspect]
     Active Substance: BUPRENORPHINE
     Dosage: 15 MCG, Q1H
     Route: 062
     Dates: start: 201409, end: 201410
  3. COHEMIN [Concomitant]
     Dosage: 1 UNIT, SEE TEXT
  4. EMCONCOR [Concomitant]
     Active Substance: BISOPROLOL FUMARATE
     Dosage: 5 MG, DAILY
  5. VAGIFEM [Concomitant]
     Active Substance: ESTRADIOL
     Dosage: 1 UNIT, 2/WEEK
  6. DIFORMIN [Concomitant]
     Dosage: 500 MG, BID
  7. PANADOL                            /00020001/ [Concomitant]
     Dosage: 1 G, TID
  8. NORSPAN [Suspect]
     Active Substance: BUPRENORPHINE
     Dosage: 5 MCG, Q1H
     Route: 062
     Dates: start: 201407, end: 201408
  9. NORSPAN [Suspect]
     Active Substance: BUPRENORPHINE
     Dosage: 10 MCG, Q1H
     Route: 062
     Dates: start: 201408, end: 201409
  10. LIPITOR [Concomitant]
     Active Substance: ATORVASTATIN CALCIUM
     Dosage: 20 MG, DAILY
  11. SERETIDE [Concomitant]
     Active Substance: FLUTICASONE FUROATE\SALMETEROL XINAFOATE
     Dosage: 50/200 MCG, BID
  12. DINIT [Concomitant]
     Active Substance: ISOSORBIDE DINITRATE
     Dosage: UNK, PRN
  13. FURESIS [Concomitant]
     Active Substance: FUROSEMIDE
     Dosage: 40 MG, BID
  14. ISMOX [Concomitant]
     Active Substance: ISOSORBIDE MONONITRATE
     Dosage: 20 MG, BID
  15. CANDACE [Concomitant]
     Dosage: 2.5 MG, DAILY
  16. BRICANYL [Concomitant]
     Active Substance: TERBUTALINE SULFATE
     Dosage: UNK, PRN

REACTIONS (7)
  - Erysipelas [Unknown]
  - Skin ulcer [Unknown]
  - Oedema peripheral [Unknown]
  - Drug ineffective [Unknown]
  - Erythema [Recovering/Resolving]
  - Rash [Unknown]
  - Arthralgia [Unknown]

NARRATIVE: CASE EVENT DATE: 201410
